FAERS Safety Report 6439903-5 (Version None)
Quarter: 2009Q4

REPORT INFORMATION
  Report Type: 
  Country: None (occurrence: None)
  Receive Date: 20091112
  Receipt Date: 20091112
  Transmission Date: 20100525
  Serious: Yes (Other)
  Sender: FDA-Public Use
  Company Number: None

PATIENT
  Sex: Female
  Weight: 127.0072 kg

DRUGS (2)
  1. PROPRANOLOL [Suspect]
     Indication: HEART RATE
     Dosage: 1 CAPSULE EVERYDAY
     Dates: start: 20070101
  2. PROPRANOLOL [Suspect]
     Indication: HEART RATE
     Dosage: 1 CAPSULE EVERYDAY
     Dates: start: 20090101

REACTIONS (3)
  - CARDIAC FLUTTER [None]
  - HEART RATE DECREASED [None]
  - PANIC REACTION [None]
